FAERS Safety Report 25336017 (Version 1)
Quarter: 2025Q2

REPORT INFORMATION
  Report Type: Spontaneous
  Country: US (occurrence: US)
  Receive Date: 20250520
  Receipt Date: 20250520
  Transmission Date: 20250717
  Serious: Yes (Other)
  Sender: APOTEX
  Company Number: US-APOTEX-2025AP007584

PATIENT
  Age: 38 Year
  Sex: Male

DRUGS (8)
  1. ACYCLOVIR [Suspect]
     Active Substance: ACYCLOVIR
     Indication: Ophthalmic herpes simplex
     Dosage: 2 GRAM, QD (400 MG, 5 TIMES A DAY)
     Route: 048
  2. VALACYCLOVIR [Suspect]
     Active Substance: VALACYCLOVIR HYDROCHLORIDE
     Indication: Ophthalmic herpes simplex
     Dosage: 500 MILLIGRAM, QD
     Route: 048
  3. VALACYCLOVIR [Suspect]
     Active Substance: VALACYCLOVIR HYDROCHLORIDE
     Dosage: 500 MILLIGRAM, QD
     Route: 048
  4. TACROLIMUS [Suspect]
     Active Substance: TACROLIMUS
     Indication: Ophthalmic herpes simplex
     Dosage: UNK, BID
     Route: 065
  5. TACROLIMUS [Suspect]
     Active Substance: TACROLIMUS
     Dosage: UNK, BID
     Route: 065
  6. LOSARTAN [Suspect]
     Active Substance: LOSARTAN
     Indication: Ophthalmic herpes simplex
     Route: 047
  7. LOSARTAN [Suspect]
     Active Substance: LOSARTAN
     Route: 047
  8. PREDNISOLONE [Concomitant]
     Active Substance: PREDNISOLONE
     Indication: Ophthalmic herpes simplex
     Dosage: UNK, QID
     Route: 065

REACTIONS (4)
  - Ophthalmic herpes simplex [Recovering/Resolving]
  - Disease recurrence [Recovering/Resolving]
  - Epigastric discomfort [Unknown]
  - Treatment noncompliance [Unknown]
